FAERS Safety Report 17581334 (Version 1)
Quarter: 2020Q1

REPORT INFORMATION
  Report Type: Spontaneous
  Country: US (occurrence: US)
  Receive Date: 20200322
  Receipt Date: 20200322
  Transmission Date: 20200409
  Serious: Yes (Hospitalization)
  Sender: FDA-Public Use
  Company Number: None

PATIENT
  Age: 47 Year
  Sex: Male

DRUGS (2)
  1. TECFIDERA [Suspect]
     Active Substance: DIMETHYL FUMARATE
     Indication: MULTIPLE SCLEROSIS
     Route: 048
     Dates: start: 20160607
  2. PROPHYLACTIC ANTIBIOTIC - UNKNOWN [Concomitant]

REACTIONS (2)
  - Urinary tract infection [None]
  - Urine odour abnormal [None]

NARRATIVE: CASE EVENT DATE: 20200301
